FAERS Safety Report 9867994 (Version 1)
Quarter: 2014Q1

REPORT INFORMATION
  Report Type: Report from Study
  Country: CA (occurrence: CA)
  Receive Date: 20140204
  Receipt Date: 20140204
  Transmission Date: 20141002
  Serious: Yes (Other)
  Sender: FDA-Public Use
  Company Number: CA-SANOFI-AVENTIS-2013SA026756

PATIENT
  Age: 39 Year
  Sex: Female
  Weight: 71.7 kg

DRUGS (6)
  1. TERIFLUNOMIDE [Suspect]
     Indication: MULTIPLE SCLEROSIS
     Route: 048
     Dates: start: 20100330, end: 20130222
  2. DIPHENHYDRAMINE [Concomitant]
     Indication: SEASONAL ALLERGY
     Route: 065
     Dates: start: 2008
  3. CHLORPHENAMINE MALEATE [Concomitant]
     Indication: SEASONAL ALLERGY
     Route: 065
     Dates: start: 2000
  4. VITAMIN D [Concomitant]
     Route: 065
     Dates: start: 2006
  5. ALL OTHER THERAPEUTIC PRODUCTS [Concomitant]
     Route: 065
     Dates: start: 2006
  6. SINUTAB MAXIMUM STRENGHT SINUS ALLERGY [Concomitant]
     Dosage: DOSE:2 UNIT(S)
     Route: 065
     Dates: start: 2000

REACTIONS (1)
  - Rash pruritic [Recovered/Resolved]
